FAERS Safety Report 8012271-3 (Version None)
Quarter: 2011Q4

REPORT INFORMATION
  Report Type: 
  Country: None (occurrence: None)
  Receive Date: 20111228
  Receipt Date: 20111223
  Transmission Date: 20120403
  Serious: Yes (Other)
  Sender: FDA-Public Use
  Company Number: US-ELI_LILLY_AND_COMPANY-US201112000918

PATIENT
  Age: 62 Year
  Sex: Female
  Weight: 74.83 kg

DRUGS (4)
  1. ASPIRIN [Concomitant]
  2. EFFIENT [Suspect]
     Indication: CORONARY ARTERIAL STENT INSERTION
     Dosage: 60 MG, LOADING DOSE
  3. EFFIENT [Suspect]
     Dosage: UNK, QD
  4. ANGIOMAX [Concomitant]

REACTIONS (1)
  - THROMBOSIS IN DEVICE [None]
